FAERS Safety Report 12079850 (Version 2)
Quarter: 2016Q1

REPORT INFORMATION
  Report Type: Spontaneous
  Country: US (occurrence: US)
  Receive Date: 20160216
  Receipt Date: 20160323
  Transmission Date: 20160526
  Serious: No
  Sender: FDA-Public Use
  Company Number: US-PFIZER INC-2016081159

PATIENT
  Age: 85 Year
  Sex: Female

DRUGS (2)
  1. ADVIL [Suspect]
     Active Substance: IBUPROFEN
     Dosage: 2 DF, UNK
  2. ADVIL [Suspect]
     Active Substance: IBUPROFEN
     Dosage: 1 DF, UNK

REACTIONS (1)
  - Drug ineffective [Unknown]
